FAERS Safety Report 24927387 (Version 3)
Quarter: 2025Q1

REPORT INFORMATION
  Report Type: Spontaneous
  Country: US (occurrence: US)
  Receive Date: 20250205
  Receipt Date: 20250303
  Transmission Date: 20250409
  Serious: Yes (Other)
  Sender: AMGEN
  Company Number: US-AMGEN-USASP2025019368

PATIENT
  Age: 64 Year
  Sex: Female
  Weight: 71.655 kg

DRUGS (6)
  1. PROLIA [Suspect]
     Active Substance: DENOSUMAB
     Indication: Product used for unknown indication
     Route: 065
  2. VITAMINS [Concomitant]
     Active Substance: VITAMINS
     Route: 065
  3. VITAMIN C [Concomitant]
     Active Substance: ASCORBIC ACID
     Route: 065
  4. CALCIUM CITRATE [Concomitant]
     Active Substance: CALCIUM CITRATE
     Route: 065
  5. VITAMIN D NOS [Concomitant]
     Active Substance: CHOLECALCIFEROL\ERGOCALCIFEROL
     Dosage: UNK UNK, QWK (50000 UNITS)
     Route: 065
  6. IRON [Concomitant]
     Active Substance: IRON
     Route: 065

REACTIONS (7)
  - Spinal fracture [Unknown]
  - White blood cell count decreased [Unknown]
  - Blister [Unknown]
  - Peripheral swelling [Unknown]
  - Paraesthesia [Unknown]
  - Urticaria [Unknown]
  - Rash [Not Recovered/Not Resolved]

NARRATIVE: CASE EVENT DATE: 20190101
